FAERS Safety Report 5801267-5 (Version None)
Quarter: 2008Q3

REPORT INFORMATION
  Report Type: 
  Country: None (occurrence: None)
  Receive Date: 20080707
  Receipt Date: 20080625
  Transmission Date: 20090109
  Serious: Yes (Other)
  Sender: FDA-Public Use
  Company Number: IT-WYE-H04714508

PATIENT
  Sex: Female

DRUGS (3)
  1. GEMTUZUMAB OZOGAMICIN [Suspect]
     Dosage: 3.2MG; FREQUENCY UNKNOWN; WITH A CUMULATIVE DOSE GIVEN 34.2 MG.
     Route: 065
     Dates: start: 20070929, end: 20080616
  2. METHYLPREDNISOLONE [Concomitant]
     Route: 065
     Dates: start: 20080604, end: 20080610
  3. METHYLPREDNISOLONE [Concomitant]
     Route: 065
     Dates: start: 20080611, end: 20080618

REACTIONS (1)
  - VASCULITIS [None]
